FAERS Safety Report 23693418 (Version 1)
Quarter: 2024Q2

REPORT INFORMATION
  Report Type: Spontaneous
  Country: US (occurrence: US)
  Receive Date: 20240401
  Receipt Date: 20240401
  Transmission Date: 20240716
  Serious: No
  Sender: FDA-Public Use
  Company Number: US-TAKEDA-2024TUS029067

PATIENT
  Sex: Female
  Weight: 45 kg

DRUGS (1)
  1. COLCRYS [Suspect]
     Active Substance: COLCHICINE
     Indication: Chondrocalcinosis
     Dosage: 0.6 MILLIGRAM, BID
     Route: 065
     Dates: start: 2019, end: 20240326

REACTIONS (2)
  - Product use in unapproved indication [Unknown]
  - No adverse event [Unknown]
